FAERS Safety Report 6608326-8 (Version None)
Quarter: 2010Q1

REPORT INFORMATION
  Report Type: 
  Country: None (occurrence: None)
  Receive Date: 20100301
  Receipt Date: 20100215
  Transmission Date: 20100710
  Serious: Yes (Death)
  Sender: FDA-Public Use
  Company Number: US-JNJFOC-20100209939

PATIENT
  Sex: Female

DRUGS (8)
  1. FENTANYL-100 [Suspect]
     Indication: DRUG USE FOR UNKNOWN INDICATION
     Route: 065
  2. AMITRIPTYLINE HCL [Suspect]
     Indication: DRUG USE FOR UNKNOWN INDICATION
     Route: 065
  3. COCAINE [Suspect]
     Indication: DRUG USE FOR UNKNOWN INDICATION
     Route: 065
  4. CANNABIS SATIVA [Concomitant]
     Route: 065
  5. METHANOL [Concomitant]
     Route: 065
  6. ACETONE [Concomitant]
     Route: 065
  7. ETHANOL [Concomitant]
  8. ISOPROPYL ALCOHOL COMPOUND LIQUID [Concomitant]

REACTIONS (2)
  - DEATH [None]
  - MULTIPLE DRUG OVERDOSE [None]
